FAERS Safety Report 9291410 (Version 2)
Quarter: 2013Q2

REPORT INFORMATION
  Report Type: Spontaneous
  Country: US (occurrence: US)
  Receive Date: 20130515
  Receipt Date: 20130530
  Transmission Date: 20140414
  Serious: No
  Sender: FDA-Public Use
  Company Number: US-009507513-1305USA005431

PATIENT
  Sex: Male
  Weight: 61.22 kg

DRUGS (2)
  1. MIRALAX [Suspect]
     Indication: FAECES HARD
     Dosage: 17 G, ONCE
     Route: 048
  2. MIRALAX [Suspect]
     Indication: MEDICAL OBSERVATION
     Dosage: 17 G, UNKNOWN
     Route: 048

REACTIONS (2)
  - Adverse event [Unknown]
  - Diarrhoea [Unknown]
